FAERS Safety Report 10961778 (Version 2)
Quarter: 2015Q2

REPORT INFORMATION
  Report Type: Spontaneous
  Country: US (occurrence: US)
  Receive Date: 20150327
  Receipt Date: 20150420
  Transmission Date: 20150821
  Serious: Yes (Other)
  Sender: FDA-Public Use
  Company Number: US-PFIZER INC-2014133703

PATIENT
  Age: 54 Year
  Sex: Male
  Weight: 132 kg

DRUGS (36)
  1. LYRICA [Suspect]
     Active Substance: PREGABALIN
     Indication: COMPLEX REGIONAL PAIN SYNDROME
     Dosage: 75 MG, UNK
     Dates: start: 20140325
  2. SUPER B-COMPLEX [Concomitant]
     Dosage: 1 DF, DAILY
     Route: 048
  3. BENADRYL [Concomitant]
     Active Substance: DIPHENHYDRAMINE HYDROCHLORIDE
     Dosage: 50 MG, UNK
     Route: 048
  4. FLONASE [Concomitant]
     Active Substance: FLUTICASONE PROPIONATE
     Dosage: 50 ?G, DAILY (2 SPRAYS IN EACH NOSTRIL)
  5. LUTEIN-ZEAXANTHIN [Concomitant]
     Dosage: 25-5 MG, 2X/DAY
     Route: 048
  6. LYRICA [Suspect]
     Active Substance: PREGABALIN
     Indication: NEUROPATHY PERIPHERAL
     Dosage: 75 MG CAPSULE, 2 CAPSULES BY MOUTH 2 TIMES DAILY
     Route: 048
     Dates: start: 20140421
  7. OXYCODONE [Concomitant]
     Active Substance: OXYCODONE
     Indication: BREAKTHROUGH PAIN
     Dosage: 40 MG, 2X/DAY
     Route: 048
     Dates: start: 2012
  8. TYLENOL [Concomitant]
     Active Substance: ACETAMINOPHEN
     Indication: PAIN
     Dosage: 325 MG, AS NEEDED
     Route: 048
  9. DURAGESIC [Concomitant]
     Active Substance: FENTANYL
     Dosage: 50 MCG/HR; 1 PATCH INTO THE SKIN EVERY 72 HOURS
  10. FLOVENT HFA [Concomitant]
     Active Substance: FLUTICASONE PROPIONATE
     Dosage: 110 ?G, 2X/DAY
  11. DESYREL [Concomitant]
     Active Substance: TRAZODONE HYDROCHLORIDE
     Indication: SLEEP DISORDER
     Dosage: 50 MG, AS NEEDED
     Route: 048
  12. VITAMIN D2 [Concomitant]
     Active Substance: ERGOCALCIFEROL
     Dosage: 2000 IU, DAILY
     Route: 048
  13. VITAMIN B12 [Concomitant]
     Active Substance: CYANOCOBALAMIN
     Dosage: 5000 ?G, DAILY
  14. MULTIVITAMINS [Concomitant]
     Active Substance: VITAMINS
     Dosage: 1 DF, 4X/DAY
     Route: 048
  15. ZOFRAN ODT [Concomitant]
     Active Substance: ONDANSETRON HYDROCHLORIDE
     Indication: NAUSEA
     Dosage: 4 MG, AS NEEDED
     Route: 048
  16. DELTASONE [Concomitant]
     Active Substance: PREDNISONE
     Dosage: 50 MG, AS NEEDED
  17. ZINC GLUCONATE [Concomitant]
     Active Substance: ZINC GLUCONATE
     Dosage: 50 MG, DAILY
     Route: 048
  18. COPPER CAPS [Concomitant]
     Dosage: 2 MG, DAILY
     Route: 048
  19. VITAMIN E [Concomitant]
     Active Substance: .ALPHA.-TOCOPHEROL
     Dosage: 400 IU, DAILY
     Route: 048
  20. FENTANYL ^ABBOTT^ [Concomitant]
     Indication: PAIN
     Dosage: 50 ?G, EVERY 3 DAYS
     Route: 062
     Dates: start: 201211
  21. VENTOLIN HFA [Concomitant]
     Active Substance: ALBUTEROL SULFATE
     Indication: WHEEZING
     Dosage: 90 ?G, AS NEEDED
  22. CELEXA [Concomitant]
     Active Substance: CITALOPRAM HYDROBROMIDE
     Dosage: 20 MG, DAILY
     Route: 048
  23. OPANA [Concomitant]
     Active Substance: OXYMORPHONE HYDROCHLORIDE
     Indication: PAIN
     Dosage: 10 MG, AS NEEDED
     Route: 048
  24. AMBIEN [Concomitant]
     Active Substance: ZOLPIDEM TARTRATE
     Indication: SLEEP DISORDER
     Dosage: 5 MG, AS NEEDED
     Route: 048
  25. LYRICA [Suspect]
     Active Substance: PREGABALIN
     Dosage: 150 MG, 3X/DAY
     Dates: start: 2014, end: 20150315
  26. VITAMIN C [Concomitant]
     Active Substance: ASCORBIC ACID
     Dosage: 500 MG, DAILY
     Route: 048
  27. FOLIC ACID. [Concomitant]
     Active Substance: FOLIC ACID
     Dosage: 1 MG, DAILY
     Route: 048
  28. VITAMIN B1 [Concomitant]
     Active Substance: THIAMINE HYDROCHLORIDE
     Dosage: 100 MG, DAILY
     Route: 048
  29. VITAMIN A [Concomitant]
     Active Substance: VITAMIN A
     Dosage: 10000 IU, 2X/DAY
     Route: 048
  30. ZYRTEC [Concomitant]
     Active Substance: CETIRIZINE HYDROCHLORIDE
     Dosage: 10 MG, DAILY
     Route: 048
  31. EPIPEN [Concomitant]
     Active Substance: EPINEPHRINE
     Dosage: 0.3 ML, AS NEEDED
  32. HYDROCORTISONE. [Concomitant]
     Active Substance: HYDROCORTISONE
     Dosage: UNK UNK, AS NEEDED
  33. WELLBUTRIN XL [Concomitant]
     Active Substance: BUPROPION HYDROCHLORIDE
     Dosage: 300 MG, DAILY
     Route: 048
  34. COQ10 [Concomitant]
     Active Substance: UBIDECARENONE
     Dosage: 300 MG, DAILY
     Route: 048
  35. FERROUS SULFATE [Concomitant]
     Active Substance: FERROUS SULFATE\FERROUS SULFATE, DRIED
     Dosage: 325 MG, 2X/DAY
  36. KRILL OIL [Concomitant]
     Active Substance: DIETARY SUPPLEMENT
     Dosage: 300 MG, DAILY
     Route: 048

REACTIONS (5)
  - Seizure [Recovered/Resolved]
  - Tremor [Recovered/Resolved]
  - Drug withdrawal syndrome [Recovered/Resolved]
  - Gait disturbance [Recovered/Resolved]
  - Product use issue [Unknown]

NARRATIVE: CASE EVENT DATE: 20150316
